FAERS Safety Report 12663565 (Version 1)
Quarter: 2016Q3

REPORT INFORMATION
  Report Type: Spontaneous
  Country: GB (occurrence: GB)
  Receive Date: 20160818
  Receipt Date: 20160818
  Transmission Date: 20161109
  Serious: Yes (Other)
  Sender: FDA-Public Use
  Company Number: GB-FRESENIUS KABI-FK201605479

PATIENT
  Sex: Female

DRUGS (1)
  1. INTRALIPID [Suspect]
     Active Substance: EGG PHOSPHOLIPIDS\GLYCERIN\SOYBEAN OIL
     Indication: NATURAL KILLER CELL COUNT INCREASED
     Route: 041

REACTIONS (5)
  - Pyrexia [Unknown]
  - Myalgia [Unknown]
  - Tachycardia [Unknown]
  - Off label use [Unknown]
  - Exposure during pregnancy [Unknown]
